FAERS Safety Report 7580902-8 (Version None)
Quarter: 2011Q2

REPORT INFORMATION
  Report Type: 
  Country: None (occurrence: None)
  Receive Date: 20110629
  Receipt Date: 20110621
  Transmission Date: 20111010
  Serious: Yes (Hospitalization)
  Sender: FDA-Public Use
  Company Number: JP-MERCK-1106USA01193

PATIENT
  Age: 64 Year
  Sex: Male
  Weight: 62 kg

DRUGS (5)
  1. PEPCID RPD [Suspect]
     Indication: PROPHYLAXIS
     Route: 048
     Dates: start: 20110419, end: 20110525
  2. CELECOXIB [Suspect]
     Indication: INTERVERTEBRAL DISC DISORDER
     Route: 048
     Dates: start: 20110419, end: 20110525
  3. LYRICA [Suspect]
     Indication: INTERVERTEBRAL DISC DISORDER
     Route: 048
     Dates: start: 20110419, end: 20110520
  4. LOXONIN [Concomitant]
     Indication: INTERVERTEBRAL DISC DISORDER
     Route: 065
     Dates: start: 20110419
  5. LOXONIN [Concomitant]
     Route: 065
     Dates: start: 20110516, end: 20110516

REACTIONS (22)
  - ENCEPHALOPATHY [None]
  - FALL [None]
  - APHAGIA [None]
  - RESPIRATORY FAILURE [None]
  - COGNITIVE DISORDER [None]
  - OXYGEN SATURATION DECREASED [None]
  - DISORIENTATION [None]
  - HYPERREFLEXIA [None]
  - CSF GLUCOSE DECREASED [None]
  - ENCEPHALITIS HERPES [None]
  - CREUTZFELDT-JAKOB DISEASE [None]
  - CSF LYMPHOCYTE COUNT INCREASED [None]
  - BEDRIDDEN [None]
  - SOMNOLENCE [None]
  - CEREBRAL ATROPHY [None]
  - ENCEPHALITIS FUNGAL [None]
  - MALIGNANT NEOPLASM OF SPINAL CORD [None]
  - GAIT DISTURBANCE [None]
  - DYSLALIA [None]
  - CSF PROTEIN [None]
  - DIZZINESS [None]
  - CSF PRESSURE DECREASED [None]
